FAERS Safety Report 6894085-0 (Version None)
Quarter: 2010Q3

REPORT INFORMATION
  Report Type: 
  Country: None (occurrence: None)
  Receive Date: 20100802
  Receipt Date: 20100719
  Transmission Date: 20110219
  Serious: Yes (Hospitalization, Other)
  Sender: FDA-Public Use
  Company Number: ES-ELI_LILLY_AND_COMPANY-ES201007005186

PATIENT
  Sex: Male
  Weight: 67 kg

DRUGS (7)
  1. FORTEO [Suspect]
     Indication: OSTEOPOROSIS
     Dosage: 20 UG, DAILY (1/D)
     Route: 058
     Dates: start: 20090815, end: 20100528
  2. FORTEO [Suspect]
     Dosage: 20 UG, DAILY (1/D)
     Dates: start: 20100701
  3. ENALAPRIL [Concomitant]
     Indication: HYPERTENSION
     Dosage: 20 UNK, UNKNOWN
     Route: 048
  4. XELEVIA [Concomitant]
     Indication: DIABETES MELLITUS
     Dosage: 100 UNK, UNKNOWN
     Route: 048
  5. MICARDIS [Concomitant]
     Indication: HYPERTENSION
     Dosage: 80 UNK, UNKNOWN
     Route: 048
  6. NOVOMIX 30 [Concomitant]
     Indication: DIABETES MELLITUS
     Dosage: 18 UNK, EACH MORNING
     Route: 058
  7. NOVOMIX 30 [Concomitant]
     Dosage: 8 UNK, EACH EVENING
     Route: 058

REACTIONS (2)
  - FALL [None]
  - HIP FRACTURE [None]
